FAERS Safety Report 7881984-6 (Version None)
Quarter: 2011Q4

REPORT INFORMATION
  Report Type: 
  Country: None (occurrence: None)
  Receive Date: 20111101
  Receipt Date: 20110606
  Transmission Date: 20120403
  Serious: Yes (Hospitalization, Other)
  Sender: FDA-Public Use
  Company Number: US-AMGEN-USASP2011025660

PATIENT
  Age: 57 Year
  Sex: Male

DRUGS (7)
  1. IRON [Concomitant]
     Dosage: UNK
  2. ASPIRIN [Concomitant]
     Dosage: UNK
  3. HYDROCODONE BITARTRATE [Concomitant]
     Indication: BACK PAIN
     Dosage: UNK
  4. ETODOLAC [Concomitant]
     Dosage: UNK
     Dates: start: 20110301
  5. PRILOSEC [Concomitant]
     Dosage: UNK
  6. ETODOLAC [Concomitant]
     Indication: ANKYLOSING SPONDYLITIS
     Dosage: UNK
  7. ENBREL [Suspect]
     Indication: ANKYLOSING SPONDYLITIS
     Dosage: 50 MG, WEEKLY
     Route: 058
     Dates: start: 20110401, end: 20110425

REACTIONS (6)
  - CARDIAC VALVE VEGETATION [None]
  - PYREXIA [None]
  - ANAEMIA [None]
  - ENDOCARDITIS [None]
  - STAPHYLOCOCCAL BACTERAEMIA [None]
  - TOOTH INFECTION [None]
